FAERS Safety Report 7558828-5 (Version None)
Quarter: 2011Q2

REPORT INFORMATION
  Report Type: 
  Country: None (occurrence: None)
  Receive Date: 20110621
  Receipt Date: 20110607
  Transmission Date: 20111010
  Serious: Yes (Hospitalization)
  Sender: FDA-Public Use
  Company Number: US-ROCHE-783205

PATIENT
  Sex: Female

DRUGS (4)
  1. BEVACIZUMAB [Suspect]
     Indication: BREAST CANCER
     Dosage: OVER 30-90 MINUTES ON DAY 1 OF WEEKS 1,3,5,7,9,11,13,15 AND 17
     Route: 042
     Dates: start: 20101112
  2. PACLITAXEL [Suspect]
     Indication: BREAST CANCER
     Dosage: 80 MG/M2 OVER 1 HOUR ON DAY 1 OF WEEK 1-12
     Route: 042
     Dates: start: 20101112
  3. DOXORUBICIN HCL [Suspect]
     Indication: BREAST CANCER
     Dosage: 69 MG/M2 OVER 5-10 MIN ON DAY 1 OF WEEKS 13,15,17 AND 19.
     Route: 042
     Dates: start: 20101112
  4. CYCLOPHOSPHAMIDE [Suspect]
     Indication: BREAST CANCER
     Dosage: 600 MG/M2 OVER 5-30 MIN ON DAY 1 OF WEEKS 13, 15, 17 AND 19
     Route: 042
     Dates: start: 20101112

REACTIONS (4)
  - NAUSEA [None]
  - ABDOMINAL PAIN [None]
  - VOMITING [None]
  - URINARY TRACT OBSTRUCTION [None]
